FAERS Safety Report 4356727-3 (Version None)
Quarter: 2004Q2

REPORT INFORMATION
  Report Type: 
  Country: None (occurrence: None)
  Receive Date: 20040507
  Receipt Date: 20040429
  Transmission Date: 20050107
  Serious: No
  Sender: FDA-Public Use
  Company Number: 2004UW08858

PATIENT

DRUGS (1)
  1. PULMICORT RESPULES [Suspect]

REACTIONS (1)
  - CONVULSION [None]
